FAERS Safety Report 9181648 (Version 1)
Quarter: 2013Q1

REPORT INFORMATION
  Report Type: Spontaneous
  Country: JP (occurrence: JP)
  Receive Date: 20130322
  Receipt Date: 20130322
  Transmission Date: 20140127
  Serious: Yes (Hospitalization)
  Sender: FDA-Public Use
  Company Number: JP-009507513-1303JPN009179

PATIENT
  Age: 64 Year
  Sex: Male
  Weight: 58 kg

DRUGS (5)
  1. PEGINTRON [Suspect]
     Indication: CHRONIC HEPATITIS C
     Dosage: 80 MICROGRAM, QW, DAILY DOSE UNKNOWN
     Route: 058
     Dates: start: 20130208, end: 20130215
  2. REBETOL [Suspect]
     Indication: CHRONIC HEPATITIS C
     Dosage: 600 MG, QD
     Route: 048
     Dates: start: 20130208, end: 20130225
  3. TELAVIC [Suspect]
     Indication: CHRONIC HEPATITIS C
     Dosage: 1500 MG, QD
     Route: 048
     Dates: start: 20130208, end: 20130225
  4. URSO [Concomitant]
     Indication: CHRONIC HEPATITIS C
     Dosage: 300 MG, QD
     Route: 048
  5. GLYCYRON [Concomitant]
     Indication: CHRONIC HEPATITIS C
     Dosage: 6 DF, QD
     Route: 048

REACTIONS (1)
  - Urinary tract infection [Recovered/Resolved]
